FAERS Safety Report 9417397 (Version 6)
Quarter: 2014Q2

REPORT INFORMATION
  Report Type: Spontaneous
  Country: FR (occurrence: FR)
  Receive Date: 20130724
  Receipt Date: 20140609
  Transmission Date: 20141212
  Serious: Yes (Death)
  Sender: FDA-Public Use
  Company Number: FR-PFIZER INC-2013212521

PATIENT
  Age: 10 Week
  Sex: Female
  Weight: 5.23 kg

DRUGS (17)
  1. ALDACTONE [Suspect]
     Indication: SODIUM RETENTION
     Dosage: UNK
     Dates: start: 20130701, end: 20130701
  2. ALDACTONE [Suspect]
     Dosage: 2 MG, 2X/DAY (IN THE MORNING AND IN THE EVENING)
     Dates: start: 20130702
  3. ALDACTONE [Suspect]
     Dosage: 10 MG, 2X/DAY
     Dates: start: 201307
  4. PROGLYCEM [Suspect]
     Indication: HYPOGLYCAEMIA
     Dosage: UNK
     Route: 048
     Dates: start: 20130620, end: 201306
  5. PROGLYCEM [Suspect]
     Dosage: 12 MG/KG/DAY
     Route: 048
     Dates: start: 20130627
  6. PROGLYCEM [Suspect]
     Dosage: 17 MG, 3X/DAY (9.8 MG/KG/DAY)
     Route: 048
     Dates: start: 20130704
  7. NIFEDIPINE ^RATIOPHARM^ [Suspect]
     Indication: HYPERTENSION
     Dosage: 2 MG, 2X/DAY (1 MG/KG/DAY)
     Route: 048
     Dates: start: 20130618
  8. NIFEDIPINE ^RATIOPHARM^ [Suspect]
     Dosage: 20 MG, UNK
     Route: 048
     Dates: start: 20130704
  9. LASILIX [Suspect]
     Indication: SODIUM RETENTION
     Dosage: UNK
     Dates: start: 20130702, end: 201307
  10. LASILIX [Suspect]
     Dosage: 5 MG, 2X/DAY
     Dates: start: 20130705
  11. EFFERALGAN [Suspect]
     Dosage: 42 MG, EVERY 12 HOURS
  12. FOLIC ACID [Suspect]
  13. ALFACALCIDOL [Suspect]
     Indication: HYPOCALCAEMIA
     Dosage: 5 GTT, EVERY 12 HOURS
     Dates: start: 20130704, end: 20130706
  14. CALCIUM GLUCONATE [Suspect]
     Indication: HYPOCALCAEMIA
     Dosage: 10 %, 8*2 ML
     Dates: start: 20130704
  15. POTASSIUM GLUCONATE [Suspect]
     Indication: HYPOKALAEMIA
     Dosage: 3.7 ML/6 HOURS
     Dates: start: 20130703, end: 20130704
  16. POTASSIUM GLUCONATE [Suspect]
     Dosage: 2.2 ML/6 HOURS
     Dates: start: 20130705, end: 20130706
  17. SODIUM CHLORIDE [Concomitant]
     Indication: HYPONATRAEMIA
     Dosage: 8*1 ML

REACTIONS (1)
  - Cardio-respiratory arrest [Fatal]
